FAERS Safety Report 6585110-5 (Version None)
Quarter: 2010Q1

REPORT INFORMATION
  Report Type: 
  Country: None (occurrence: None)
  Receive Date: 20100217
  Receipt Date: 20100205
  Transmission Date: 20100710
  Serious: Yes (Other)
  Sender: FDA-Public Use
  Company Number: MU-PFIZER INC-2010011979

PATIENT
  Age: 51 Year
  Sex: Male

DRUGS (1)
  1. DALACIN [Suspect]
     Dosage: 900 MG PER DAY
     Route: 065

REACTIONS (5)
  - APHASIA [None]
  - ARRHYTHMIA [None]
  - BEDRIDDEN [None]
  - LIVER FUNCTION TEST ABNORMAL [None]
  - PYREXIA [None]
